FAERS Safety Report 4874418-7 (Version None)
Quarter: 2006Q1

REPORT INFORMATION
  Report Type: 
  Country: None (occurrence: None)
  Receive Date: 20060104
  Receipt Date: 20051221
  Transmission Date: 20060701
  Serious: Yes (Hospitalization, Other)
  Sender: FDA-Public Use
  Company Number: 2005139447

PATIENT
  Age: 78 Year
  Sex: Male

DRUGS (13)
  1. LIPITOR [Suspect]
     Indication: CARDIAC DISORDER
     Dosage: 10 MG (10 MG, 1 IN 1 D), ORAL
     Route: 048
  2. ZYRTEC [Suspect]
     Indication: HYPERSENSITIVITY
     Dosage: (1 IN 1 D), ORAL
     Route: 048
  3. ZYRTEC [Suspect]
     Indication: SEASONAL ALLERGY
     Dosage: (1 IN 1 D), ORAL
     Route: 048
  4. ARICEPT [Suspect]
     Indication: ILL-DEFINED DISORDER
     Dosage: ORAL
     Route: 048
  5. PLAVIX [Concomitant]
  6. ASPIRIN [Concomitant]
  7. IMDUR [Concomitant]
  8. LORAZEPAM [Concomitant]
  9. FOLIC ACID [Concomitant]
  10. LANOXIN [Concomitant]
  11. COUMADIN [Concomitant]
  12. LISINOPRIL [Concomitant]
  13. LUNESTA [Concomitant]

REACTIONS (18)
  - ABDOMINAL PAIN [None]
  - ANGINA UNSTABLE [None]
  - ANURIA [None]
  - ARTERIOSCLEROSIS CORONARY ARTERY [None]
  - ATRIAL FIBRILLATION [None]
  - CATHETER RELATED COMPLICATION [None]
  - DEMENTIA [None]
  - DYSURIA [None]
  - FOLLICULITIS [None]
  - HEART RATE IRREGULAR [None]
  - INCONTINENCE [None]
  - IRON DEFICIENCY ANAEMIA [None]
  - OEDEMA [None]
  - PENILE HAEMORRHAGE [None]
  - POST PROCEDURAL COMPLICATION [None]
  - PRURITUS [None]
  - ROSACEA [None]
  - STENT PLACEMENT [None]
